FAERS Safety Report 8524827 (Version 2)
Quarter: 2012Q4

REPORT INFORMATION
  Report Type: 
  Country: US (occurrence: US)
  Receive Date: 20120423
  Receipt Date: 20121224
  Transmission Date: 20130627
  Serious: No
  Sender: FDA-Public Use
  Company Number: US-BIOGENIDEC-2012BI013325

PATIENT
  Age: 43 None
  Sex: Female

DRUGS (2)
  1. TYSABRI [Suspect]
     Indication: MULTIPLE SCLEROSIS
     Route: 042
     Dates: start: 20110516, end: 20121030
  2. MUSCLE RELAXERS (NOS) [Concomitant]
     Indication: MUSCLE SPASMS

REACTIONS (9)
  - Mobility decreased [Not Recovered/Not Resolved]
  - Musculoskeletal disorder [Not Recovered/Not Resolved]
  - Panic attack [Recovered/Resolved]
  - Fall [Recovered/Resolved]
  - Ligament sprain [Recovered/Resolved]
  - Depression [Not Recovered/Not Resolved]
  - Fear [Not Recovered/Not Resolved]
  - Muscle spasms [Unknown]
  - Multiple sclerosis [Not Recovered/Not Resolved]
